FAERS Safety Report 14389766 (Version 3)
Quarter: 2019Q1

REPORT INFORMATION
  Report Type: Spontaneous
  Country: CN (occurrence: CN)
  Receive Date: 20180115
  Receipt Date: 20190123
  Transmission Date: 20190417
  Serious: Yes (Death, Hospitalization, Other)
  Sender: FDA-Public Use
  Company Number: CN-009507513-1801CHN003909

PATIENT
  Age: 60 Year
  Sex: Male

DRUGS (3)
  1. A TUO MO LAN [Concomitant]
     Indication: PLATELET COUNT DECREASED
  2. PEMBROLIZUMAB. [Suspect]
     Active Substance: PEMBROLIZUMAB
     Indication: HEPATOCELLULAR CARCINOMA
     Dosage: 2 MG/KG, Q3W
     Dates: start: 20161103, end: 2016
  3. PEMBROLIZUMAB. [Suspect]
     Active Substance: PEMBROLIZUMAB
     Indication: METASTASES TO LUNG

REACTIONS (5)
  - Drug-induced liver injury [Fatal]
  - Off label use [Unknown]
  - Acute hepatic failure [Fatal]
  - Rash [Recovered/Resolved]
  - Hepatic encephalopathy [Fatal]

NARRATIVE: CASE EVENT DATE: 201611
